FAERS Safety Report 6779944-1 (Version None)
Quarter: 2010Q2

REPORT INFORMATION
  Report Type: 
  Country: None (occurrence: None)
  Receive Date: 20100618
  Receipt Date: 20100608
  Transmission Date: 20101027
  Serious: Yes (Other)
  Sender: FDA-Public Use
  Company Number: GB-PFIZER INC-2010049670

PATIENT
  Age: 33 Year
  Sex: Male

DRUGS (2)
  1. CHAMPIX [Suspect]
     Dosage: UNK
     Route: 048
  2. ALCOHOL [Interacting]

REACTIONS (4)
  - AGGRESSION [None]
  - ALCOHOL INTERACTION [None]
  - MENTAL DISORDER [None]
  - MYOCARDIAL INFARCTION [None]
